FAERS Safety Report 8216994-2 (Version None)
Quarter: 2012Q1

REPORT INFORMATION
  Report Type: 
  Country: None (occurrence: None)
  Receive Date: 20120314
  Receipt Date: 20120228
  Transmission Date: 20120608
  Serious: Yes (Death, Other)
  Sender: FDA-Public Use
  Company Number: US-2012-10276

PATIENT
  Age: 48 Year
  Sex: Female

DRUGS (2)
  1. CYCLOPHOSPAMIDE (CYCLOPHOSPHAMIDE) [Concomitant]
  2. BUSULFAN [Suspect]
     Indication: STEM CELL TRANSPLANT
     Dosage: 12.8 MG/KG, UNK
     Dates: start: 20090301

REACTIONS (10)
  - LIVER DISORDER [None]
  - POST PROCEDURAL COMPLICATION [None]
  - BRAIN ABSCESS [None]
  - RECURRENT CANCER [None]
  - ACUTE GRAFT VERSUS HOST DISEASE [None]
  - SINUSITIS [None]
  - STEM CELL TRANSPLANT [None]
  - FATIGUE [None]
  - CYSTITIS HAEMORRHAGIC [None]
  - PANCYTOPENIA [None]
